FAERS Safety Report 19728368 (Version 1)
Quarter: 2021Q3

REPORT INFORMATION
  Report Type: Spontaneous
  Country: US (occurrence: US)
  Receive Date: 20210820
  Receipt Date: 20210820
  Transmission Date: 20211014
  Serious: Yes (Other)
  Sender: FDA-Public Use
  Company Number: US-ASTRAZENECA-2021A684309

PATIENT
  Age: 48 Year
  Sex: Male
  Weight: 122.5 kg

DRUGS (1)
  1. PULMICORT FLEXHALER [Suspect]
     Active Substance: BUDESONIDE
     Indication: COVID-19 TREATMENT
     Dosage: 90 MCG 2 PUFFS TWO TIMES A DAY
     Route: 055
     Dates: start: 20210806

REACTIONS (3)
  - Hiccups [Unknown]
  - Device malfunction [Unknown]
  - Gastrointestinal haemorrhage [Unknown]

NARRATIVE: CASE EVENT DATE: 20210812
